FAERS Safety Report 5499304-3 (Version None)
Quarter: 2007Q4

REPORT INFORMATION
  Report Type: 
  Country: None (occurrence: None)
  Receive Date: 20071026
  Receipt Date: 20071025
  Transmission Date: 20080405
  Serious: Yes (Other)
  Sender: FDA-Public Use
  Company Number: A0639103A

PATIENT
  Sex: Female

DRUGS (2)
  1. NICORETTE [Suspect]
     Indication: SMOKING CESSATION THERAPY
     Route: 002
     Dates: start: 20050101
  2. ANTIDIABETIC (UNSPECIFIED) [Concomitant]
     Indication: DIABETES MELLITUS

REACTIONS (6)
  - DEPENDENCE [None]
  - ILL-DEFINED DISORDER [None]
  - INCREASED APPETITE [None]
  - INTENTIONAL DRUG MISUSE [None]
  - NAUSEA [None]
  - WEIGHT INCREASED [None]
